FAERS Safety Report 6601996-X (Version None)
Quarter: 2010Q1

REPORT INFORMATION
  Report Type: 
  Country: None (occurrence: None)
  Receive Date: 20100218
  Receipt Date: 20100208
  Transmission Date: 20100710
  Serious: Yes (Hospitalization)
  Sender: FDA-Public Use
  Company Number: 231425J10USA

PATIENT
  Age: 44 Year
  Sex: Male
  Weight: 68 kg

DRUGS (7)
  1. REBIF [Suspect]
     Indication: MULTIPLE SCLEROSIS
     Dosage: 44 MCG, 3 IN 1 WEEKS, SUBCUTANEOUS
     Route: 058
     Dates: start: 20091023
  2. BACLOFEN [Concomitant]
  3. COREG [Concomitant]
  4. TOPAMAX [Concomitant]
  5. PRAVASTATIN [Concomitant]
  6. WELLBUTRIN [Concomitant]
  7. NYSTATIN [Concomitant]

REACTIONS (4)
  - BRONCHITIS [None]
  - DEHYDRATION [None]
  - LETHARGY [None]
  - TYPE 1 DIABETES MELLITUS [None]
